FAERS Safety Report 4899590-4 (Version None)
Quarter: 2006Q1

REPORT INFORMATION
  Report Type: 
  Country: None (occurrence: None)
  Receive Date: 20060118
  Receipt Date: 20050729
  Transmission Date: 20060701
  Serious: No
  Sender: FDA-Public Use
  Company Number: 2005001469

PATIENT
  Age: 70 Year
  Sex: Male

DRUGS (3)
  1. TARCEVA [Suspect]
     Indication: METASTATIC RENAL CELL CARCINOMA
     Dosage: 150 MG (QD), ORAL
     Route: 048
  2. AVASTIN [Suspect]
     Indication: METASTATIC RENAL CELL CARCINOMA
     Dosage: 10MG/KG (EVERY 2 WEEKS), INTRAVENOUS
     Route: 042
  3. WARFARIN SODIUM [Concomitant]

REACTIONS (3)
  - BLOOD BILIRUBIN INCREASED [None]
  - PLATELET COUNT DECREASED [None]
  - PROTEINURIA [None]
